FAERS Safety Report 8101537-4 (Version None)
Quarter: 2012Q1

REPORT INFORMATION
  Report Type: 
  Country: None (occurrence: None)
  Receive Date: 20120129
  Receipt Date: 20110915
  Transmission Date: 20120608
  Serious: No
  Sender: FDA-Public Use
  Company Number: US-ABBOTT-11P-163-0855755-00

PATIENT
  Age: 50 Year
  Sex: Female

DRUGS (28)
  1. HUMIRA [Suspect]
     Indication: RHEUMATOID ARTHRITIS
     Dates: start: 20110617
  2. OXYCODONE HCL [Concomitant]
     Indication: PAIN
  3. DYAZIDE [Concomitant]
     Indication: HYPERTENSION
     Dosage: 37.5 MG/25 MG
  4. TRIAMCINOLONE [Concomitant]
     Indication: PSORIASIS
  5. NEURONTIN [Concomitant]
     Indication: FIBROMYALGIA
  6. SULFASALAZINE [Concomitant]
     Indication: RHEUMATOID ARTHRITIS
  7. MULTIVITAMINS WITH IRON [Concomitant]
     Indication: PRODUCT USED FOR UNKNOWN INDICATION
  8. VOLTAREN [Concomitant]
     Indication: PAIN
     Dosage: USES GEL SPARINGLY
  9. HUMIRA [Suspect]
     Indication: RHEUMATOID ARTHRITIS
     Route: 058
     Dates: start: 20110617
  10. ZANTAC [Concomitant]
     Indication: PROPHYLAXIS AGAINST GASTROINTESTINAL ULCER
     Dosage: IN THE AM
  11. FOLIC ACID [Concomitant]
     Indication: PRODUCT USED FOR UNKNOWN INDICATION
     Dosage: DAILY EXCEPT DAYS METHOTREXATE IS TAKEN
  12. MUPIROCIN [Concomitant]
     Indication: PRODUCT USED FOR UNKNOWN INDICATION
  13. PREDNISONE TAB [Concomitant]
     Indication: RHEUMATOID ARTHRITIS
     Dosage: 5-10 MG
  14. LEVOTHYROXINE SODIUM [Concomitant]
     Indication: HYPOTHYROIDISM
  15. PROBIOTIC [Concomitant]
     Indication: SUPPLEMENTATION THERAPY
     Dosage: EVERY AM
  16. CALCIUM W/VITAMIN D NOS [Concomitant]
     Indication: VITAMIN SUPPLEMENTATION
     Dosage: 1200MG/1000MG BID
  17. FLAXSEED OIL [Concomitant]
     Indication: PRODUCT USED FOR UNKNOWN INDICATION
  18. MINOCYCLINE HCL [Concomitant]
     Indication: DRUG THERAPY
  19. TRAMADOL HCL [Concomitant]
     Indication: PAIN
  20. LASIX [Concomitant]
     Indication: OEDEMA PERIPHERAL
  21. KLONOPIN [Concomitant]
     Indication: ANXIETY
  22. GARLIC [Concomitant]
     Indication: DRUG THERAPY
     Dosage: ODORLESS
  23. CINNAMON [Concomitant]
     Indication: SUPPLEMENTATION THERAPY
  24. ASPIRIN [Concomitant]
     Indication: CARDIOVASCULAR EVENT PROPHYLAXIS
  25. LASIX [Concomitant]
     Indication: RHEUMATOID ARTHRITIS
  26. MINOCYCLINE HCL [Concomitant]
     Indication: RHEUMATOID ARTHRITIS
  27. SKELAXIN [Concomitant]
     Indication: PRODUCT USED FOR UNKNOWN INDICATION
  28. CELEXA [Concomitant]
     Indication: DEPRESSION

REACTIONS (1)
  - INJECTION SITE PAIN [None]
